FAERS Safety Report 9471455 (Version 2)
Quarter: 2013Q3

REPORT INFORMATION
  Report Type: Report from Study
  Country: TW (occurrence: TW)
  Receive Date: 20130822
  Receipt Date: 20130822
  Transmission Date: 20140515
  Serious: Yes (Hospitalization)
  Sender: FDA-Public Use
  Company Number: PHHO2008TW10109

PATIENT
  Age: 72 Year
  Sex: Female
  Weight: 53 kg

DRUGS (2)
  1. PLACEBO [Suspect]
     Indication: CARDIOVASCULAR DISORDER
     Route: 048
     Dates: start: 20080625, end: 20111226
  2. DIOVAN [Suspect]

REACTIONS (12)
  - Hyperkalaemia [Recovered/Resolved]
  - Angina pectoris [Recovering/Resolving]
  - Chest pain [Recovering/Resolving]
  - Local swelling [Recovering/Resolving]
  - Spinal osteoarthritis [Recovering/Resolving]
  - Radiculopathy [Recovering/Resolving]
  - Hypoaesthesia [Recovering/Resolving]
  - Tenderness [Recovering/Resolving]
  - Myalgia [Recovering/Resolving]
  - Hyponatraemia [Recovered/Resolved]
  - Myofascial pain syndrome [Recovering/Resolving]
  - Disease progression [Recovering/Resolving]
